FAERS Safety Report 6106884-3 (Version None)
Quarter: 2009Q1

REPORT INFORMATION
  Report Type: 
  Country: None (occurrence: None)
  Receive Date: 20090303
  Receipt Date: 20090225
  Transmission Date: 20090719
  Serious: Yes (Death, Life-Threatening, Hospitalization, Other)
  Sender: FDA-Public Use
  Company Number: 2000002949-FJ

PATIENT
  Age: 20 Year
  Sex: Male
  Weight: 70 kg

DRUGS (12)
  1. PROGRAF [Suspect]
     Indication: STEM CELL TRANSPLANT
     Dosage: SEE IMAGE
     Route: 041
     Dates: start: 19980604, end: 19980613
  2. PROGRAF [Suspect]
     Indication: STEM CELL TRANSPLANT
     Dosage: SEE IMAGE
     Route: 041
     Dates: start: 19980614, end: 19980619
  3. PROGRAF [Suspect]
     Indication: STEM CELL TRANSPLANT
     Dosage: SEE IMAGE
     Route: 041
     Dates: start: 19980620, end: 19980621
  4. PROGRAF [Suspect]
     Indication: STEM CELL TRANSPLANT
     Dosage: SEE IMAGE
     Route: 041
     Dates: start: 19980709
  5. PREDNISOLONE [Suspect]
     Indication: STEM CELL TRANSPLANT
     Dosage: 65 MG, IV NOS; 130 MG, IV NOS
     Route: 042
     Dates: start: 19980617, end: 19980617
  6. PREDNISOLONE [Suspect]
     Indication: STEM CELL TRANSPLANT
     Dosage: 65 MG, IV NOS; 130 MG, IV NOS
     Route: 042
     Dates: start: 19980618, end: 19980716
  7. NEUTROGIN (LENOGRASTIM) INJECTION [Concomitant]
  8. CARBENIN (BETAMIPRON, PANIPENEM) INJECTION [Concomitant]
  9. HABEKACIN (ARBEKACIN) INJECTION [Concomitant]
  10. DIFLUCAN [Concomitant]
  11. METHOTREXATE FORMULATION UNKNOWN [Concomitant]
  12. CYCLOSPORINE FORMULATION UNKNOWN [Concomitant]

REACTIONS (14)
  - ACUTE GRAFT VERSUS HOST DISEASE IN INTESTINE [None]
  - ACUTE GRAFT VERSUS HOST DISEASE IN SKIN [None]
  - ADENOVIRAL HAEMORRHAGIC CYSTITIS [None]
  - ALANINE AMINOTRANSFERASE INCREASED [None]
  - BLOOD CREATININE INCREASED [None]
  - BLOOD GLUCOSE INCREASED [None]
  - CONVULSION [None]
  - INFECTION [None]
  - MELAENA [None]
  - NEUROTOXICITY [None]
  - RENAL IMPAIRMENT [None]
  - REVERSIBLE POSTERIOR LEUKOENCEPHALOPATHY SYNDROME [None]
  - THROMBOTIC MICROANGIOPATHY [None]
  - URINE OUTPUT DECREASED [None]
